FAERS Safety Report 5636847-3 (Version None)
Quarter: 2008Q1

REPORT INFORMATION
  Report Type: 
  Country: None (occurrence: None)
  Receive Date: 20080225
  Receipt Date: 20080212
  Transmission Date: 20080703
  Serious: Yes (Hospitalization)
  Sender: FDA-Public Use
  Company Number: FR-JNJFOC-20080205383

PATIENT
  Age: 75 Year
  Sex: Male

DRUGS (7)
  1. TRAMADOL HCL [Suspect]
     Route: 048
  2. TRAMADOL HCL [Suspect]
     Route: 048
  3. TRAMADOL HCL [Suspect]
     Indication: BACK PAIN
     Route: 048
  4. PREVISCAN [Interacting]
     Indication: ATRIAL FIBRILLATION
     Route: 048
  5. ACETAMINOPHEN [Suspect]
     Indication: BACK PAIN
     Route: 048
  6. PERFALGAN [Suspect]
     Indication: BACK PAIN
     Route: 042
  7. CACIT D3 [Concomitant]
     Route: 065

REACTIONS (3)
  - DRUG INTERACTION [None]
  - INTERNATIONAL NORMALISED RATIO INCREASED [None]
  - MUSCLE HAEMORRHAGE [None]
